FAERS Safety Report 23179946 (Version 1)
Quarter: 2023Q4

REPORT INFORMATION
  Report Type: Spontaneous
  Country: GB (occurrence: GB)
  Receive Date: 20231114
  Receipt Date: 20231114
  Transmission Date: 20240109
  Serious: Yes (Other)
  Sender: FDA-Public Use
  Company Number: None

PATIENT
  Age: 36 Year
  Sex: Female

DRUGS (1)
  1. CEPHALEXIN [Suspect]
     Active Substance: CEPHALEXIN
     Indication: Lower respiratory tract infection
     Dosage: 500 MILLIGRAM, TID (TABLET)
     Route: 065
     Dates: start: 20231025

REACTIONS (1)
  - Pruritus [Not Recovered/Not Resolved]
